FAERS Safety Report 5052236-7 (Version None)
Quarter: 2006Q2

REPORT INFORMATION
  Report Type: 
  Country: None (occurrence: None)
  Receive Date: 20060614
  Receipt Date: 20060220
  Transmission Date: 20061013
  Serious: Yes (Other)
  Sender: FDA-Public Use
  Company Number: 437324

PATIENT
  Age: 62 Year
  Sex: Female
  Weight: 64 kg

DRUGS (6)
  1. BONIVA [Suspect]
     Indication: OSTEOPOROSIS
     Dosage: 150 MG 1 PER MONTH ORAL
     Route: 048
     Dates: start: 20051005
  2. VITAMIN E (ALPHA-TOCOPHEROL) [Concomitant]
  3. L-LYSINE (LYSINE) [Concomitant]
  4. ASCORBIC ACID [Concomitant]
  5. ZANTAC [Concomitant]
  6. ANTACID NOS (ANTACID NOS) [Concomitant]

REACTIONS (5)
  - ABDOMINAL DISCOMFORT [None]
  - DYSPEPSIA [None]
  - ERUCTATION [None]
  - FLATULENCE [None]
  - MUSCULOSKELETAL PAIN [None]
